FAERS Safety Report 9584266 (Version 1)
Quarter: 2013Q4

REPORT INFORMATION
  Report Type: Spontaneous
  Country: US (occurrence: US)
  Receive Date: 20131002
  Receipt Date: 20131002
  Transmission Date: 20140711
  Serious: No
  Sender: FDA-Public Use
  Company Number: US-AMGEN-USASP2013051663

PATIENT
  Age: 28 Year
  Sex: Male
  Weight: 61.22 kg

DRUGS (3)
  1. ENBREL [Suspect]
     Indication: PRODUCT USED FOR UNKNOWN INDICATION
     Dosage: 50 MG, QWK
     Route: 058
  2. PLAQUENIL                          /00072602/ [Concomitant]
     Dosage: 200 MG, UNK
  3. MULTIVITAMINS, PLAIN [Concomitant]
     Dosage: UNK

REACTIONS (3)
  - Injection site bruising [Unknown]
  - Injection site haemorrhage [Unknown]
  - Injection site erythema [Unknown]
